FAERS Safety Report 7632246-3 (Version None)
Quarter: 2011Q3

REPORT INFORMATION
  Report Type: 
  Country: None (occurrence: None)
  Receive Date: 20110725
  Receipt Date: 20100706
  Transmission Date: 20111222
  Serious: No
  Sender: FDA-Public Use
  Company Number: US-BRISTOL-MYERS SQUIBB COMPANY-15179419

PATIENT
  Age: 69 Year
  Sex: Female

DRUGS (10)
  1. CLONAZEPAM [Concomitant]
     Indication: ANXIETY
  2. CLONAZEPAM [Concomitant]
     Indication: PAIN
  3. LISINOPRIL [Concomitant]
  4. LEVOTHYROXINE SODIUM [Concomitant]
     Indication: HYPOTHYROIDISM
  5. SIMVASTATIN [Concomitant]
     Indication: BLOOD CHOLESTEROL
  6. KADIAN [Concomitant]
     Indication: PAIN
  7. TEMAZEPAM [Concomitant]
     Indication: SLEEP DISORDER
  8. COUMADIN [Suspect]
     Dosage: 1DF=5MG:MON,TUE,WED,FRI,SAT AND 6MG:SUN,THU STARTED WITH 7.5 MG
  9. PLAVIX [Suspect]
  10. SOMA [Concomitant]
     Indication: MYALGIA

REACTIONS (1)
  - INTERNATIONAL NORMALISED RATIO FLUCTUATION [None]
